FAERS Safety Report 4616183-4 (Version None)
Quarter: 2005Q1

REPORT INFORMATION
  Report Type: 
  Country: None (occurrence: None)
  Receive Date: 20050317
  Receipt Date: 20050304
  Transmission Date: 20050727
  Serious: Yes (Death, Hospitalization)
  Sender: FDA-Public Use
  Company Number: 2005-UK-00378UK

PATIENT
  Age: 18 Month
  Sex: Female

DRUGS (3)
  1. NEVIRAPINE [Suspect]
     Indication: HIV INFECTION
     Dosage: PO
     Route: 048
     Dates: start: 20030701, end: 20040101
  2. ABACAVIR (ABACAVIR) [Concomitant]
  3. LAMIVUDINE [Concomitant]

REACTIONS (6)
  - COAGULOPATHY [None]
  - DRUG RESISTANCE [None]
  - HAEMORRHAGE INTRACRANIAL [None]
  - HEPATIC FUNCTION ABNORMAL [None]
  - RENAL FAILURE [None]
  - VIRAL LOAD INCREASED [None]
